FAERS Safety Report 6457929-2 (Version None)
Quarter: 2009Q4

REPORT INFORMATION
  Report Type: 
  Country: None (occurrence: None)
  Receive Date: 20091125
  Receipt Date: 20091117
  Transmission Date: 20100525
  Serious: Yes (Other)
  Sender: FDA-Public Use
  Company Number: US-AMGEN-US375171

PATIENT
  Sex: Male

DRUGS (4)
  1. NEUPOGEN [Suspect]
     Indication: PERIPHERAL BLOOD STEM CELL APHERESIS
     Dates: start: 20040618, end: 20040622
  2. CHOLESTEROL- AND TRIGLYCERIDE REDUCERS [Concomitant]
  3. ASPIRIN [Concomitant]
  4. ANTIDEPRESSANT NOS [Concomitant]

REACTIONS (3)
  - FALL [None]
  - OSTEOPENIA [None]
  - SPINAL COMPRESSION FRACTURE [None]
